FAERS Safety Report 17585023 (Version 1)
Quarter: 2020Q1

REPORT INFORMATION
  Report Type: Spontaneous
  Country: US (occurrence: US)
  Receive Date: 20200324
  Receipt Date: 20200324
  Transmission Date: 20200409
  Serious: No
  Sender: FDA-Public Use
  Company Number: None

PATIENT
  Age: 61 Year
  Sex: Male

DRUGS (1)
  1. DUPILUMAB (DUPILUMAB 150MG/ML INJ, SYR ,2ML [Suspect]
     Active Substance: DUPILUMAB
     Indication: ASTHMA
     Dates: start: 20190318, end: 20200131

REACTIONS (1)
  - Pharyngeal swelling [None]

NARRATIVE: CASE EVENT DATE: 20200131
